FAERS Safety Report 13199825 (Version 3)
Quarter: 2017Q3

REPORT INFORMATION
  Report Type: Report from Study
  Country: US (occurrence: US)
  Receive Date: 20170208
  Receipt Date: 20170725
  Transmission Date: 20171127
  Serious: Yes (Death, Hospitalization)
  Sender: FDA-Public Use
  Company Number: US-ACTELION-A-NJ2017-149586

PATIENT
  Age: 63 Year
  Sex: Female
  Weight: 64.85 kg

DRUGS (1)
  1. OPSUMIT [Suspect]
     Active Substance: MACITENTAN
     Indication: PULMONARY ARTERIAL HYPERTENSION
     Dosage: 10 MG, QD
     Route: 048

REACTIONS (10)
  - Fluid retention [Unknown]
  - Cardiac failure congestive [Unknown]
  - Pericardial effusion [Unknown]
  - Systemic lupus erythematosus [Unknown]
  - Pulmonary arterial hypertension [Unknown]
  - Death [Fatal]
  - Renal disorder [Unknown]
  - Syncope [Unknown]
  - Pleural effusion [Unknown]
  - Fall [Unknown]

NARRATIVE: CASE EVENT DATE: 201701
